FAERS Safety Report 20651605 (Version 1)
Quarter: 2022Q1

REPORT INFORMATION
  Report Type: Spontaneous
  Country: US (occurrence: US)
  Receive Date: 20220330
  Receipt Date: 20220330
  Transmission Date: 20220424
  Serious: Yes (Hospitalization, Other)
  Sender: FDA-Public Use
  Company Number: US-ABBVIE-22K-163-4334291-00

PATIENT
  Sex: Female

DRUGS (1)
  1. HUMIRA [Suspect]
     Active Substance: ADALIMUMAB
     Indication: Rheumatoid arthritis
     Route: 058

REACTIONS (14)
  - Transfusion [Unknown]
  - Hospitalisation [Unknown]
  - Illness [Unknown]
  - Glaucoma [Unknown]
  - Blood potassium abnormal [Unknown]
  - Blood magnesium abnormal [Unknown]
  - Multiple fractures [Unknown]
  - Haemorrhagic disorder [Unknown]
  - Blister [Unknown]
  - Blood pressure abnormal [Unknown]
  - Muscle disorder [Unknown]
  - Thrombosis [Unknown]
  - Adverse drug reaction [Unknown]
  - Pain [Unknown]
